FAERS Safety Report 15807967 (Version 1)
Quarter: 2019Q1

REPORT INFORMATION
  Report Type: Spontaneous
  Country: CN (occurrence: CN)
  Receive Date: 20190110
  Receipt Date: 20190110
  Transmission Date: 20190417
  Serious: Yes (Other)
  Sender: FDA-Public Use
  Company Number: CN-PFIZER INC-2019002802

PATIENT
  Age: 55 Year
  Sex: Male

DRUGS (1)
  1. CYTOSAR [Suspect]
     Active Substance: CYTARABINE
     Indication: THERAPEUTIC PROCEDURE
     Dosage: 0.75 G, 1X/DAY
     Route: 041
     Dates: start: 20180621, end: 20180623

REACTIONS (3)
  - Hyperpyrexia [Recovering/Resolving]
  - Papule [Recovering/Resolving]
  - Rash pruritic [Recovering/Resolving]

NARRATIVE: CASE EVENT DATE: 20180623
